FAERS Safety Report 6109585-0 (Version None)
Quarter: 2009Q1

REPORT INFORMATION
  Report Type: 
  Country: None (occurrence: None)
  Receive Date: 20090310
  Receipt Date: 20090225
  Transmission Date: 20090719
  Serious: Yes (Hospitalization, Other)
  Sender: FDA-Public Use
  Company Number: PHHY2009DE07047

PATIENT
  Age: 86 Year
  Sex: Male
  Weight: 60 kg

DRUGS (9)
  1. METOPROLOL [Suspect]
     Indication: ATRIAL FIBRILLATION
     Dosage: 50 MG, QD
     Route: 048
     Dates: start: 20070101, end: 20080904
  2. DIGITOXIN [Concomitant]
     Indication: ATRIAL FIBRILLATION
     Dosage: 0.07 MG, QD
     Route: 048
     Dates: start: 20070101, end: 20080904
  3. RIVASTIGMINE [Concomitant]
     Indication: DEMENTIA
     Dosage: 9.5 MG, QD
     Route: 003
     Dates: start: 20070101, end: 20080904
  4. ACETYLSALICYLIC ACID SRT [Concomitant]
     Indication: MYOCARDIAL INFARCTION
     Dosage: 100 MG, QD
     Route: 048
     Dates: start: 20070101, end: 20080910
  5. ACETYLSALICYLIC ACID SRT [Concomitant]
     Indication: PROPHYLAXIS
  6. HCT ^ISIS^ [Concomitant]
     Indication: HYPERTENSION
     Dosage: 6.25 MG, QD
     Route: 048
     Dates: start: 20070101, end: 20080910
  7. PIPAMPERONE [Concomitant]
     Indication: SLEEP DISORDER
     Dosage: 40 MG, QD
     Route: 048
     Dates: start: 20070101, end: 20080910
  8. RAMIPRIL [Concomitant]
     Indication: HYPERTENSION
     Dosage: 2.5 MG, QD
     Route: 048
     Dates: start: 20070101, end: 20080910
  9. ZOPIDORM [Concomitant]
     Indication: SLEEP DISORDER
     Dosage: 7.5 MG, QD
     Route: 048
     Dates: start: 20070101, end: 20080910

REACTIONS (5)
  - BLOOD GLUCOSE INCREASED [None]
  - BRADYARRHYTHMIA [None]
  - ELECTROCARDIOGRAM ST SEGMENT DEPRESSION [None]
  - HYPERTENSION [None]
  - SYNCOPE [None]
